FAERS Safety Report 24173114 (Version 2)
Quarter: 2024Q3

REPORT INFORMATION
  Report Type: Spontaneous
  Country: US (occurrence: US)
  Receive Date: 20240805
  Receipt Date: 20240904
  Transmission Date: 20241016
  Serious: No
  Sender: PFIZER
  Company Number: US-PFIZER INC-202400227027

PATIENT
  Age: 15 Year
  Sex: Male
  Weight: 33.57 kg

DRUGS (1)
  1. GENOTROPIN [Suspect]
     Active Substance: SOMATROPIN
     Indication: Growth disorder
     Dosage: 4MG SHOT IN HIS LEG

REACTIONS (2)
  - Drug dose omission by device [Not Recovered/Not Resolved]
  - Device mechanical issue [Unknown]
